FAERS Safety Report 18073235 (Version 27)
Quarter: 2022Q3

REPORT INFORMATION
  Report Type: Report from Study
  Country: BR (occurrence: BR)
  Receive Date: 20200727
  Receipt Date: 20220701
  Transmission Date: 20221027
  Serious: Yes (Death, Hospitalization, Other)
  Sender: FDA-Public Use
  Company Number: NVSC2020BR186493

PATIENT
  Age: 77 Year
  Sex: Male
  Weight: 62 kg

DRUGS (11)
  1. VOTRIENT [Suspect]
     Active Substance: PAZOPANIB HYDROCHLORIDE
     Indication: Renal cancer metastatic
     Dosage: 2 DF, QD (800 MG, QD)
     Route: 065
     Dates: start: 202002
  2. VOTRIENT [Suspect]
     Active Substance: PAZOPANIB HYDROCHLORIDE
     Dosage: 400 MG, BID  (2 TABLETS PER DAY)
     Route: 065
     Dates: start: 20200213
  3. VOTRIENT [Suspect]
     Active Substance: PAZOPANIB HYDROCHLORIDE
     Dosage: 2 DOSAGE FORM, QD
     Route: 065
     Dates: start: 20200613
  4. VOTRIENT [Suspect]
     Active Substance: PAZOPANIB HYDROCHLORIDE
     Dosage: UNK
     Route: 065
     Dates: start: 20200213
  5. VOTRIENT [Suspect]
     Active Substance: PAZOPANIB HYDROCHLORIDE
     Dosage: UNK
     Route: 065
     Dates: start: 20220213
  6. SIMVASTATIN [Suspect]
     Active Substance: SIMVASTATIN
     Indication: Blood cholesterol
     Dosage: UNK
     Route: 065
  7. SIMVASTATIN [Suspect]
     Active Substance: SIMVASTATIN
     Dosage: UNK
     Route: 065
  8. QUETIAPINE [Suspect]
     Active Substance: QUETIAPINE
     Indication: Product used for unknown indication
     Dosage: UNK
     Route: 065
  9. TANSULOSINA [Concomitant]
     Indication: Prostate cancer
     Dosage: UNK
     Route: 065
  10. DUTASTERIDE [Concomitant]
     Active Substance: DUTASTERIDE
     Indication: Prostate cancer
     Dosage: UNK
     Route: 065
  11. PREDNISONE [Concomitant]
     Active Substance: PREDNISONE
     Indication: Product used for unknown indication
     Dosage: UNK
     Route: 065

REACTIONS (80)
  - Shock [Fatal]
  - Acute respiratory failure [Fatal]
  - Seizure [Fatal]
  - Renal cancer metastatic [Fatal]
  - Peripheral arterial occlusive disease [Fatal]
  - Sensory loss [Unknown]
  - Cystitis [Recovering/Resolving]
  - Wound infection [Unknown]
  - Dyspnoea [Unknown]
  - Blood pressure increased [Unknown]
  - Cardiac disorder [Unknown]
  - Cerebrovascular accident [Unknown]
  - Hallucination [Recovered/Resolved]
  - Prosopagnosia [Recovered/Resolved]
  - Aphasia [Recovered/Resolved]
  - Fatigue [Unknown]
  - Headache [Not Recovered/Not Resolved]
  - Malaise [Recovered/Resolved]
  - Stoma complication [Unknown]
  - Hallucination [Not Recovered/Not Resolved]
  - Cachexia [Not Recovered/Not Resolved]
  - Myocardial infarction [Recovered/Resolved]
  - Pneumonia [Unknown]
  - Fournier^s gangrene [Unknown]
  - Skin graft failure [Unknown]
  - Cough [Not Recovered/Not Resolved]
  - Retching [Recovering/Resolving]
  - Thyroid disorder [Recovering/Resolving]
  - Hypoaesthesia [Not Recovered/Not Resolved]
  - Hypoaesthesia oral [Not Recovered/Not Resolved]
  - Motion sickness [Recovered/Resolved]
  - Vomiting [Recovered/Resolved]
  - Diarrhoea [Not Recovered/Not Resolved]
  - Blood glucose decreased [Recovered/Resolved]
  - Vomiting [Not Recovered/Not Resolved]
  - Nausea [Recovered/Resolved]
  - Dyspepsia [Recovered/Resolved]
  - Dysuria [Unknown]
  - Memory impairment [Recovered/Resolved]
  - Hypoacusis [Unknown]
  - Malaise [Recovered/Resolved]
  - Dermatitis diaper [Unknown]
  - Hyperhidrosis [Not Recovered/Not Resolved]
  - Illness [Unknown]
  - Blood cholesterol increased [Unknown]
  - Gait inability [Not Recovered/Not Resolved]
  - Urinary tract infection [Recovered/Resolved]
  - Pyrexia [Recovered/Resolved]
  - Pain [Unknown]
  - Asthenia [Not Recovered/Not Resolved]
  - Vomiting [Recovered/Resolved]
  - Dyspepsia [Not Recovered/Not Resolved]
  - Herpes zoster [Unknown]
  - Weight decreased [Recovering/Resolving]
  - Vomiting [Recovered/Resolved]
  - Decreased appetite [Not Recovered/Not Resolved]
  - Cystitis [Recovered/Resolved]
  - Nervousness [Unknown]
  - Limb discomfort [Not Recovered/Not Resolved]
  - Head discomfort [Not Recovered/Not Resolved]
  - Pruritus [Not Recovered/Not Resolved]
  - Hypersensitivity [Not Recovered/Not Resolved]
  - Confusional state [Unknown]
  - Tremor [Unknown]
  - Malaise [Unknown]
  - Incontinence [Not Recovered/Not Resolved]
  - Pollakiuria [Unknown]
  - Dysstasia [Not Recovered/Not Resolved]
  - Eating disorder [Not Recovered/Not Resolved]
  - Erythema [Recovering/Resolving]
  - Muscular weakness [Not Recovered/Not Resolved]
  - Urinary incontinence [Unknown]
  - Dizziness [Not Recovered/Not Resolved]
  - Rash [Not Recovered/Not Resolved]
  - Pyrexia [Not Recovered/Not Resolved]
  - Mental disorder [Not Recovered/Not Resolved]
  - Stoma prolapse [Unknown]
  - Anaemia [Unknown]
  - Inappropriate schedule of product administration [Unknown]
  - Product dose omission issue [Unknown]

NARRATIVE: CASE EVENT DATE: 20200201
